FAERS Safety Report 22270024 (Version 1)
Quarter: 2023Q2

REPORT INFORMATION
  Report Type: Report from Study
  Country: FR (occurrence: FR)
  Receive Date: 20230501
  Receipt Date: 20230501
  Transmission Date: 20230722
  Serious: Yes (Other)
  Sender: FDA-Public Use
  Company Number: FR-002147023-NVSC2023FR092332

PATIENT

DRUGS (1)
  1. RUXOLITINIB [Suspect]
     Active Substance: RUXOLITINIB
     Indication: Myelofibrosis
     Dosage: UNK
     Route: 065
     Dates: start: 2022, end: 2022

REACTIONS (5)
  - Haemorrhage [Unknown]
  - Drug ineffective [Unknown]
  - Fibrosis [Unknown]
  - Splenomegaly [Unknown]
  - Thrombocytopenia [Unknown]
